FAERS Safety Report 9315039 (Version 1)
Quarter: 2013Q2

REPORT INFORMATION
  Report Type: Spontaneous
  Country: BR (occurrence: BR)
  Receive Date: 20130529
  Receipt Date: 20130529
  Transmission Date: 20140414
  Serious: Yes (Hospitalization)
  Sender: FDA-Public Use
  Company Number: BR-ROCHE-1228900

PATIENT
  Age: 72 Year
  Sex: Male
  Weight: 83 kg

DRUGS (4)
  1. TORADOL [Suspect]
     Indication: TORTICOLLIS
     Route: 065
     Dates: start: 20130522
  2. COLTRAX [Suspect]
     Indication: TORTICOLLIS
     Route: 065
     Dates: start: 20130522
  3. SIMVASTATIN [Concomitant]
     Indication: BLOOD CHOLESTEROL INCREASED
  4. CO-RENITEC [Concomitant]
     Indication: HYPERTENSION

REACTIONS (2)
  - Dyspnoea [Recovered/Resolved]
  - Asthenopia [Recovered/Resolved]
